FAERS Safety Report 25901267 (Version 1)
Quarter: 2025Q4

REPORT INFORMATION
  Report Type: Spontaneous
  Country: EU (occurrence: EU)
  Receive Date: 20251009
  Receipt Date: 20251009
  Transmission Date: 20260119
  Serious: Yes (Life-Threatening, Other)
  Sender: SANDOZ
  Company Number: EU-SANDOZ-SDZ2025PL074099

PATIENT
  Age: 31 Year
  Sex: Male

DRUGS (3)
  1. CYCLOPHOSPHAMIDE [Suspect]
     Active Substance: CYCLOPHOSPHAMIDE
     Indication: Systemic lupus erythematosus
     Dosage: UNK
     Route: 065
  2. METHOTREXATE [Suspect]
     Active Substance: METHOTREXATE
     Indication: Systemic lupus erythematosus
     Dosage: UNK
     Route: 065
  3. RITUXIMAB [Suspect]
     Active Substance: RITUXIMAB
     Indication: Systemic lupus erythematosus
     Route: 065

REACTIONS (7)
  - Infected skin ulcer [Recovering/Resolving]
  - Septic shock [Recovering/Resolving]
  - Cardiac arrest [Recovering/Resolving]
  - Decubitus ulcer [Recovering/Resolving]
  - Acute kidney injury [Recovering/Resolving]
  - Endocarditis [Unknown]
  - Product use in unapproved indication [Unknown]
